FAERS Safety Report 9294514 (Version 2)
Quarter: 2013Q2

REPORT INFORMATION
  Report Type: Spontaneous
  Country: VE (occurrence: VE)
  Receive Date: 20130516
  Receipt Date: 20130618
  Transmission Date: 20140414
  Serious: Yes (Death, Other)
  Sender: FDA-Public Use
  Company Number: VE-PFIZER INC-2013123246

PATIENT
  Age: 62 Year
  Sex: Female

DRUGS (4)
  1. LIPITOR [Suspect]
     Indication: LOCAL SWELLING
     Dosage: 20 MG, 1X/DAY
     Route: 048
     Dates: start: 201303, end: 201304
  2. LYRICA [Suspect]
     Indication: MUSCLE SPASMS
     Dosage: ONCE DIALY
     Route: 048
     Dates: start: 2010, end: 201305
  3. ATENOLOL [Concomitant]
     Indication: HYPERTENSION
     Dosage: 50 MG, 1X/DAY
     Route: 048
     Dates: start: 1995
  4. LOSARTAN [Concomitant]
     Indication: HYPERTENSION
     Dosage: 50 MG, 1X/DAY
     Route: 048
     Dates: start: 1995

REACTIONS (6)
  - Death [Fatal]
  - Rectal haemorrhage [Not Recovered/Not Resolved]
  - Depression [Recovered/Resolved]
  - Somnolence [Recovered/Resolved]
  - Asthenia [Not Recovered/Not Resolved]
  - Off label use [Recovered/Resolved]
